FAERS Safety Report 6149886-3 (Version None)
Quarter: 2009Q2

REPORT INFORMATION
  Report Type: 
  Country: None (occurrence: None)
  Receive Date: 20090407
  Receipt Date: 20090331
  Transmission Date: 20091009
  Serious: Yes (Other)
  Sender: FDA-Public Use
  Company Number: CHPA2009US08399

PATIENT
  Age: 74 Year
  Sex: Male
  Weight: 95.2 kg

DRUGS (4)
  1. BENEFIBER PLUS CALCIUM WITH WHEAT DEXTRIN(NCH)(CALCIUM CARBONATE, WHEA [Suspect]
     Indication: NUTRITIONAL SUPPORT
     Dosage: 3 DF, QD, ORAL
     Route: 048
     Dates: start: 20090201
  2. CITRACAL (CALCIUM CITRATE) [Concomitant]
  3. VITAMIN D [Concomitant]
  4. STEROIDS NOS (NO INGREDIENTS/SUBSTANCES) [Concomitant]

REACTIONS (1)
  - BLOOD PRESSURE INCREASED [None]
